FAERS Safety Report 4429298-0 (Version None)
Quarter: 2004Q3

REPORT INFORMATION
  Report Type: 
  Country: None (occurrence: None)
  Receive Date: 20040819
  Receipt Date: 20040813
  Transmission Date: 20050211
  Serious: Yes (Death)
  Sender: FDA-Public Use
  Company Number: 200416116US

PATIENT
  Age: 18 Year
  Sex: Female

DRUGS (2)
  1. LANTUS [Suspect]
     Dosage: DOSE UNIT: UNITS
  2. NOVOLOG [Suspect]
     Dosage: DOSE: UNK

REACTIONS (1)
  - MEDICATION ERROR [None]
